FAERS Safety Report 14984284 (Version 1)
Quarter: 2018Q2

REPORT INFORMATION
  Report Type: Report from Study
  Country: None (occurrence: AE)
  Receive Date: 20180607
  Receipt Date: 20180607
  Transmission Date: 20180711
  Serious: Yes (Hospitalization)
  Sender: FDA-Public Use
  Company Number: AE-ABBVIE-18K-166-2379226-00

PATIENT
  Sex: Female

DRUGS (15)
  1. QUETIAPINE. [Concomitant]
     Active Substance: QUETIAPINE
     Indication: DISEASE RECURRENCE
  2. CARMELLOSE GLYCEROL [Concomitant]
     Indication: DRY EYE
     Dosage: 0.5-0.9 %
     Dates: start: 20180308
  3. SODIUM HYALURONATE-CARBOXYMETHYL CELLULOSE-GLYCERIN [Concomitant]
     Indication: DRY EYE
     Dosage: 0.5-0.9-0.1 %
     Dates: start: 20180527
  4. BRINTELLIX [Concomitant]
     Active Substance: VORTIOXETINE HYDROBROMIDE
     Indication: MAJOR DEPRESSION
     Dates: start: 20180508
  5. SODIUM HYALURONATE-CARBOXYMETHYL CELLULOSE-GLYCERIN [Concomitant]
     Indication: ILL-DEFINED DISORDER
  6. BRINTELLIX [Concomitant]
     Active Substance: VORTIOXETINE HYDROBROMIDE
     Indication: GENERALISED ANXIETY DISORDER
  7. QUETIAPINE. [Concomitant]
     Active Substance: QUETIAPINE
     Indication: MAJOR DEPRESSION
     Dates: start: 20170330
  8. QUETIAPINE. [Concomitant]
     Active Substance: QUETIAPINE
     Indication: GENERALISED ANXIETY DISORDER
  9. VICTOZA [Concomitant]
     Active Substance: LIRAGLUTIDE
     Indication: TYPE 1 DIABETES MELLITUS
     Dosage: 0.16MG/0.1 ML OR (18MG/3ML)
     Route: 058
     Dates: start: 20160629
  10. BRINTELLIX [Concomitant]
     Active Substance: VORTIOXETINE HYDROBROMIDE
     Indication: DISEASE RECURRENCE
  11. DORZOLAMIDE TIMOLOL [Concomitant]
     Active Substance: DORZOLAMIDE
     Indication: INTRAOCULAR PRESSURE INCREASED
     Dosage: 2-0.5 % EYE
     Dates: start: 20180409
  12. QUETIAPINE. [Concomitant]
     Active Substance: QUETIAPINE
     Indication: ANGER
  13. ERGOCALCIFEROL. [Concomitant]
     Active Substance: ERGOCALCIFEROL
     Indication: COELIAC DISEASE
     Dosage: 50,000 UNIT
     Route: 048
     Dates: start: 20171025
  14. HUMIRA [Suspect]
     Active Substance: ADALIMUMAB
     Indication: UVEITIS
     Route: 058
     Dates: start: 20180228
  15. HYALURONIC ACID [Concomitant]
     Active Substance: HYALURONIC ACID
     Indication: DRY EYE
     Dosage: 0.2% 0.2 % EYE
     Dates: start: 20171127

REACTIONS (1)
  - Hyperglycaemia [Recovering/Resolving]

NARRATIVE: CASE EVENT DATE: 20180531
